FAERS Safety Report 26053356 (Version 1)
Quarter: 2025Q4

REPORT INFORMATION
  Report Type: Spontaneous
  Country: US (occurrence: None)
  Receive Date: 20251117
  Receipt Date: 20251117
  Transmission Date: 20260118
  Serious: Yes (Death, Hospitalization)
  Sender: FDA-CTU
  Company Number: None

PATIENT
  Age: 60 Year
  Sex: Female
  Weight: 69 kg

DRUGS (11)
  1. CYCLOPHOSPHAMIDE [Suspect]
     Active Substance: CYCLOPHOSPHAMIDE
     Dates: end: 20241111
  2. CYTARABINE [Suspect]
     Active Substance: CYTARABINE
     Dates: end: 20241111
  3. SPRYCEL [Suspect]
     Active Substance: DASATINIB
     Dates: end: 20241119
  4. DEXAMETHASONE [Suspect]
     Active Substance: DEXAMETHASONE
     Dates: end: 20241122
  5. DOXORUBICIN HYDROCHLORIDE [Suspect]
     Active Substance: DOXORUBICIN HYDROCHLORIDE
     Dates: end: 20241112
  6. METHOTREXATE [Suspect]
     Active Substance: METHOTREXATE
     Dates: end: 20241117
  7. VINCRISTINE SULFATE [Suspect]
     Active Substance: VINCRISTINE SULFATE
     Dates: end: 20241119
  8. anidulafugin [Concomitant]
  9. BISOPROLOL [Concomitant]
     Active Substance: BISOPROLOL
  10. meropenern [Concomitant]
  11. PIPERACILLIN AND TAZOBACTAM [Concomitant]
     Active Substance: PIPERACILLIN SODIUM\TAZOBACTAM SODIUM

REACTIONS (6)
  - Atrial fibrillation [None]
  - Multiple organ dysfunction syndrome [None]
  - Left ventricular failure [None]
  - Right ventricular failure [None]
  - General physical health deterioration [None]
  - Therapy non-responder [None]

NARRATIVE: CASE EVENT DATE: 20251105
